FAERS Safety Report 25571742 (Version 2)
Quarter: 2025Q4

REPORT INFORMATION
  Report Type: Report from Study
  Country: US (occurrence: US)
  Receive Date: 20250717
  Receipt Date: 20251109
  Transmission Date: 20260117
  Serious: Yes (Hospitalization)
  Sender: CSL BEHRING
  Company Number: US-BEH-2025207443

PATIENT
  Age: 78 Year
  Sex: Female

DRUGS (2)
  1. VELTASSA [Suspect]
     Active Substance: PATIROMER
     Indication: Hyperkalaemia
     Dosage: 8.4 G, BIW
     Route: 048
  2. VELTASSA [Suspect]
     Active Substance: PATIROMER
     Dosage: 8.4 G (4 PACKETS WEEKLY)
     Route: 048

REACTIONS (3)
  - Haemoglobin decreased [Unknown]
  - Off label use [Not Recovered/Not Resolved]
  - Off label use [Unknown]

NARRATIVE: CASE EVENT DATE: 20250708
